FAERS Safety Report 9064840 (Version 1)
Quarter: 2013Q1

REPORT INFORMATION
  Report Type: Spontaneous
  Country: GB (occurrence: GB)
  Receive Date: 20130130
  Receipt Date: 20130130
  Transmission Date: 20140127
  Serious: Yes (Disabling)
  Sender: FDA-Public Use
  Company Number: GB-BRISTOL-MYERS SQUIBB COMPANY-17307539

PATIENT
  Age: 42 Year
  Sex: Female
  Weight: 68.5 kg

DRUGS (4)
  1. PRAVASTATIN SODIUM [Suspect]
     Dosage: AT NIGHT
     Dates: start: 20121212
  2. NOVORAPID [Concomitant]
     Dates: start: 20121016, end: 20130109
  3. BETAMETHASONE VALERATE [Concomitant]
     Dates: start: 20121212
  4. LORATADINE [Concomitant]
     Dates: start: 20130103

REACTIONS (1)
  - Hyperglycaemia [Recovering/Resolving]
